FAERS Safety Report 8158619-0 (Version None)
Quarter: 2012Q1

REPORT INFORMATION
  Report Type: 
  Country: None (occurrence: None)
  Receive Date: 20120223
  Receipt Date: 20120219
  Transmission Date: 20120608
  Serious: Yes (Life-Threatening, Hospitalization)
  Sender: FDA-Public Use
  Company Number: US-AMGEN-USASP2012011026

PATIENT
  Age: 88 Year
  Sex: Male

DRUGS (15)
  1. ATIVAN [Concomitant]
  2. PEPCID [Concomitant]
  3. SOLU-CORTEF [Concomitant]
  4. NEUPOGEN [Suspect]
     Indication: NEUTROPENIA
     Dates: start: 20120214
  5. IRON [Concomitant]
  6. KEPPRA [Concomitant]
  7. SYNTHROID [Concomitant]
  8. FOLIC ACID [Concomitant]
  9. SEROQUEL [Concomitant]
  10. COLYMYCIN                          /00013206/ [Concomitant]
  11. PLAQUENIL [Concomitant]
  12. MIRALAX                            /00754501/ [Concomitant]
  13. PROSCAR [Concomitant]
  14. HALDOL [Concomitant]
  15. VITAMIN B6 [Concomitant]

REACTIONS (2)
  - RESPIRATORY DISTRESS [None]
  - WHITE BLOOD CELL COUNT DECREASED [None]
